FAERS Safety Report 11096006 (Version 1)
Quarter: 2015Q2

REPORT INFORMATION
  Report Type: Spontaneous
  Country: LB (occurrence: None)
  Receive Date: 20150505
  Receipt Date: 20150505
  Transmission Date: 20150821
  Serious: Yes (Other)
  Sender: FDA-Public Use
  Company Number: 2015HINLIT0395

PATIENT
  Age: 3 Year
  Sex: Female

DRUGS (2)
  1. VALPROATE [Concomitant]
     Active Substance: VALPROIC ACID
  2. LEVETIRACTAM [Suspect]
     Active Substance: LEVETIRACETAM
     Indication: SEIZURE

REACTIONS (5)
  - Atonic seizures [None]
  - Head injury [None]
  - Fall [None]
  - Multiple injuries [None]
  - Condition aggravated [None]
